FAERS Safety Report 9263699 (Version 1)
Quarter: 2013Q2

REPORT INFORMATION
  Report Type: Spontaneous
  Country: US (occurrence: US)
  Receive Date: 20130430
  Receipt Date: 20130430
  Transmission Date: 20140414
  Serious: Yes (Hospitalization, Other)
  Sender: FDA-Public Use
  Company Number: US-PFIZER INC-2013091117

PATIENT
  Age: 68 Year
  Sex: Female
  Weight: 113.38 kg

DRUGS (9)
  1. MORPHINE SULFATE [Suspect]
     Indication: BACK PAIN
     Dosage: 30 MG AS NEEDED 2X/DAY
     Route: 048
  2. MORPHINE SULFATE [Suspect]
     Indication: PAIN
  3. DILAUDID [Suspect]
     Indication: BACK PAIN
     Dosage: 4 MG, 4X/DAY
     Route: 048
  4. DILAUDID [Suspect]
     Indication: PAIN
     Dosage: 4 MG, EVERY 4 HRS
     Route: 048
  5. LYRICA [Concomitant]
     Indication: BACK PAIN
     Dosage: 100 MG, 2X/DAY
     Dates: start: 2012
  6. LYRICA [Concomitant]
     Indication: ARTHRALGIA
  7. LEXAPRO [Concomitant]
     Indication: DEPRESSION
     Dosage: 10 MG, 1X/DAY
  8. FLEXERIL [Concomitant]
     Indication: MUSCLE SPASMS
     Dosage: 10 MG, 4X/DAY, AS NEEDED
  9. LUNESTA [Concomitant]
     Indication: INSOMNIA
     Dosage: 1 MG, 1X/DAY, AT BEDTIME

REACTIONS (2)
  - Arthropathy [Unknown]
  - Gallbladder disorder [Unknown]
